FAERS Safety Report 9832604 (Version 2)
Quarter: 2014Q1

REPORT INFORMATION
  Report Type: Spontaneous
  Country: US (occurrence: US)
  Receive Date: 20140121
  Receipt Date: 20140121
  Transmission Date: 20141002
  Serious: No
  Sender: FDA-Public Use
  Company Number: US-B.I. PHARMACEUTICALS,INC./RIDGEFIELD-2013-BI-38952PF

PATIENT
  Sex: Female

DRUGS (11)
  1. SPIRIVA [Suspect]
  2. EFFEXOR XR [Suspect]
     Dosage: 75 MG
     Route: 048
  3. PCN [Suspect]
  4. MYCINS [Suspect]
  5. AVELOX [Suspect]
  6. ZITHROMAX [Suspect]
  7. SYNTHROID [Suspect]
  8. SINGULAR [Suspect]
  9. CRESTOR [Suspect]
  10. ADVAIR [Suspect]
  11. PROAIR [Suspect]

REACTIONS (1)
  - Drug hypersensitivity [Unknown]
